FAERS Safety Report 4895303-0 (Version None)
Quarter: 2006Q1

REPORT INFORMATION
  Report Type: 
  Country: None (occurrence: None)
  Receive Date: 20060124
  Receipt Date: 20060111
  Transmission Date: 20060701
  Serious: Yes (Other)
  Sender: FDA-Public Use
  Company Number: 216869

PATIENT
  Age: 75 Year
  Sex: Male

DRUGS (4)
  1. MABETHERA                  (RITUXIMAB) [Suspect]
     Indication: CHRONIC LYMPHOCYTIC LEUKAEMIA
     Dosage: 890 , 1/MONTH, INTRAVENOUS
     Route: 042
     Dates: start: 20040802, end: 20041222
  2. FLUDARABINE PHOSPHATE [Suspect]
     Indication: CHRONIC LYMPHOCYTIC LEUKAEMIA
     Dosage: 33.5 , 3/MONTH, INTRAVENOUS
     Route: 042
     Dates: start: 20040802
  3. CYCLOPHOSPHAMIDE [Suspect]
     Indication: CHRONIC LYMPHOCYTIC LEUKAEMIA
     Dosage: 335 , 3/MONTH, INTRAVENOUS
     Route: 042
     Dates: start: 20040802, end: 20041222
  4. FOLIC ACID [Concomitant]

REACTIONS (5)
  - BONE MARROW FAILURE [None]
  - FEBRILE NEUTROPENIA [None]
  - LUNG INFILTRATION [None]
  - MYELODYSPLASTIC SYNDROME [None]
  - PAROTITIS [None]
